FAERS Safety Report 7951952-4 (Version None)
Quarter: 2011Q4

REPORT INFORMATION
  Report Type: 
  Country: None (occurrence: None)
  Receive Date: 20111201
  Receipt Date: 20111125
  Transmission Date: 20120403
  Serious: Yes (Hospitalization, Other)
  Sender: FDA-Public Use
  Company Number: US-PFIZER INC-2011284752

PATIENT
  Age: 87 Year
  Sex: Female
  Weight: 57.596 kg

DRUGS (13)
  1. DILANTIN-125 [Suspect]
     Indication: CONVULSION
     Dosage: 350 MG, DAILY
     Dates: start: 20100801
  2. LOVENOX [Suspect]
     Indication: GASTRIC DISORDER
     Dosage: UNK
  3. XOPENEX [Concomitant]
     Indication: DYSPNOEA
     Dosage: UNK, EVERY 8 HOURS
  4. FEOSOL [Concomitant]
     Indication: MINERAL SUPPLEMENTATION
     Dosage: UNK
  5. VITAMIN D [Concomitant]
     Dosage: UNK
  6. DILANTIN-125 [Suspect]
     Dosage: 400 MG, 3X/DAY
     Dates: start: 20101001
  7. ASPIRIN [Concomitant]
     Dosage: UNK
  8. DILANTIN-125 [Suspect]
     Dosage: 50 MG, 3X/DAY
     Dates: start: 20101001, end: 20101001
  9. DILANTIN-125 [Suspect]
     Dosage: 400 MG, DAILY
     Dates: start: 20111101
  10. PROTONIX [Suspect]
     Indication: GASTRIC DISORDER
     Dosage: UNK
  11. SOTALOL [Concomitant]
     Indication: ATRIAL FIBRILLATION
     Dosage: UNK
  12. ALENDRONATE SODIUM [Concomitant]
     Dosage: UNK
  13. CENTRUM [Concomitant]
     Dosage: UNK

REACTIONS (5)
  - FATIGUE [None]
  - SOMNOLENCE [None]
  - CONVULSION [None]
  - ANTICONVULSANT DRUG LEVEL ABNORMAL [None]
  - ACCIDENT [None]
